FAERS Safety Report 13862824 (Version 2)
Quarter: 2017Q3

REPORT INFORMATION
  Report Type: Spontaneous
  Country: FR (occurrence: FR)
  Receive Date: 20170814
  Receipt Date: 20170816
  Transmission Date: 20171127
  Serious: Yes (Other)
  Sender: FDA-Public Use
  Company Number: FR-009507513-1708FRA004957

PATIENT
  Age: 62 Year
  Sex: Male

DRUGS (8)
  1. IMIPENEM AND CILASTATIN [Suspect]
     Active Substance: CILASTATIN SODIUM\IMIPENEM
     Indication: PNEUMONIA
     Dosage: 1 G, Q8H
     Route: 042
     Dates: start: 20090618, end: 20090622
  2. AMIKACIN [Concomitant]
     Active Substance: AMIKACIN
     Indication: PNEUMONIA
     Dosage: 1000 MG
     Route: 042
     Dates: start: 20090618, end: 20090621
  3. MIDAZOLAM [Concomitant]
     Active Substance: MIDAZOLAM HYDROCHLORIDE
     Indication: SEDATION
     Dosage: CONTINUOUS
     Route: 042
     Dates: start: 20090608, end: 20090726
  4. TAHOR [Concomitant]
     Active Substance: ATORVASTATIN CALCIUM
     Indication: DYSLIPIDAEMIA
     Dosage: 40 MG, QD
     Route: 048
     Dates: start: 20090602, end: 20090623
  5. IMIPENEM AND CILASTATIN [Suspect]
     Active Substance: CILASTATIN SODIUM\IMIPENEM
     Indication: SEPTIC SHOCK
  6. INEXIUM (ESOMEPRAZOLE MAGNESIUM) [Concomitant]
     Active Substance: ESOMEPRAZOLE MAGNESIUM
     Indication: OESOPHAGEAL ULCER
     Dosage: 40 MG, BID
     Route: 042
     Dates: start: 20090619, end: 20090624
  7. TERCIAN [Concomitant]
     Active Substance: CYAMEMAZINE
     Dosage: 25 MG, Q6H
     Route: 048
     Dates: start: 20090619, end: 20090623
  8. SUFENTANIL [Concomitant]
     Active Substance: SUFENTANIL
     Indication: SEDATION
     Dosage: CONTINUOUS
     Route: 042
     Dates: start: 20090608, end: 20090726

REACTIONS (1)
  - Drug reaction with eosinophilia and systemic symptoms [Recovered/Resolved]

NARRATIVE: CASE EVENT DATE: 20090621
